FAERS Safety Report 8016748-6 (Version None)
Quarter: 2012Q1

REPORT INFORMATION
  Report Type: 
  Country: None (occurrence: None)
  Receive Date: 20120102
  Receipt Date: 20111227
  Transmission Date: 20120608
  Serious: Yes (Hospitalization)
  Sender: FDA-Public Use
  Company Number: US-BIOGENIDEC-2011BI048950

PATIENT
  Age: 58 Year
  Sex: Female

DRUGS (4)
  1. INSULIN [Concomitant]
     Indication: DIABETES MELLITUS
  2. AVONEX [Suspect]
     Route: 030
     Dates: start: 20030801, end: 20050301
  3. AVONEX [Suspect]
     Indication: MULTIPLE SCLEROSIS
     Route: 030
     Dates: start: 20090101
  4. AVONEX [Suspect]
     Route: 030
     Dates: end: 20030801

REACTIONS (2)
  - MULTIPLE SCLEROSIS RELAPSE [None]
  - BLOOD GLUCOSE INCREASED [None]
